FAERS Safety Report 11008925 (Version 2)
Quarter: 2015Q2

REPORT INFORMATION
  Report Type: Spontaneous
  Country: PL (occurrence: PL)
  Receive Date: 20150410
  Receipt Date: 20150428
  Transmission Date: 20150821
  Serious: Yes (Hospitalization)
  Sender: FDA-Public Use
  Company Number: PL-AUROBINDO-AUR-APL-2015-03067

PATIENT
  Age: 56 Year
  Sex: Male

DRUGS (4)
  1. LITHIUM. [Interacting]
     Active Substance: LITHIUM
     Indication: AFFECTIVE DISORDER
     Dosage: UNK
     Route: 065
  2. VALSARTAN. [Suspect]
     Active Substance: VALSARTAN
     Indication: HYPERTENSION
     Dosage: UNK
     Route: 065
  3. AMISULPRIDE [Interacting]
     Active Substance: AMISULPRIDE
     Indication: DEPRESSIVE SYMPTOM
     Dosage: UNK
     Route: 065
  4. LITHIUM. [Interacting]
     Active Substance: LITHIUM
     Dosage: 1250 MG, DAILY
     Route: 065

REACTIONS (26)
  - Libido increased [Recovered/Resolved]
  - Confusional state [Recovered/Resolved]
  - Antipsychotic drug level increased [Recovered/Resolved]
  - Elevated mood [Recovered/Resolved]
  - Blood creatine phosphokinase increased [Recovered/Resolved]
  - Neuroleptic malignant syndrome [Recovered/Resolved]
  - Drug interaction [Recovered/Resolved]
  - Tachypnoea [Recovered/Resolved]
  - Insomnia [Recovered/Resolved]
  - Diarrhoea [Recovered/Resolved]
  - Blood calcium decreased [Recovered/Resolved]
  - Toxicity to various agents [Recovered/Resolved]
  - Agitation [Recovered/Resolved]
  - Tremor [Recovered/Resolved]
  - Stupor [Recovered/Resolved]
  - Muscle rigidity [Recovered/Resolved]
  - Hypokalaemia [Recovered/Resolved]
  - Delirium [Recovered/Resolved]
  - Tachycardia [Recovered/Resolved]
  - Hypertension [Recovered/Resolved]
  - Depressed level of consciousness [Recovered/Resolved]
  - Speech disorder [Recovered/Resolved]
  - Motor dysfunction [Recovered/Resolved]
  - Myoglobin blood increased [Recovered/Resolved]
  - Disorientation [Recovered/Resolved]
  - Pyrexia [Recovered/Resolved]
